FAERS Safety Report 26020586 (Version 1)
Quarter: 2025Q4

REPORT INFORMATION
  Report Type: Spontaneous
  Country: EU (occurrence: EU)
  Receive Date: 20251110
  Receipt Date: 20251110
  Transmission Date: 20260117
  Serious: Yes (Other)
  Sender: NOVARTIS
  Company Number: EU-002147023-NVSC2025DE171777

PATIENT
  Age: 74 Year
  Sex: Female

DRUGS (4)
  1. RIBOCICLIB [Suspect]
     Active Substance: RIBOCICLIB
     Indication: Product used for unknown indication
     Dosage: 600 MG (21 DAYS OF TREATMENT/MONTHLY CYCLE)
     Route: 065
     Dates: start: 202410, end: 202412
  2. RIBOCICLIB [Suspect]
     Active Substance: RIBOCICLIB
     Dosage: 600 MG (21 DAYS OF TREATMENT/MONTHLY CYCLE)
     Route: 065
     Dates: start: 202501, end: 202507
  3. RIBOCICLIB [Suspect]
     Active Substance: RIBOCICLIB
     Dosage: 400 MG (FROM DAY 1-14)
     Route: 065
     Dates: start: 202507
  4. RIBOCICLIB [Suspect]
     Active Substance: RIBOCICLIB
     Dosage: 200 MG (FROM DAY 15-21 IN EACH CYCLE)
     Route: 065

REACTIONS (3)
  - Leukopenia [Unknown]
  - Anaemia [Unknown]
  - Off label use [Unknown]
